FAERS Safety Report 10042485 (Version 1)
Quarter: 2014Q1

REPORT INFORMATION
  Report Type: Spontaneous
  Country: DK (occurrence: DK)
  Receive Date: 20140327
  Receipt Date: 20140327
  Transmission Date: 20141002
  Serious: Yes (Other)
  Sender: FDA-Public Use
  Company Number: PHHY2014DK036604

PATIENT
  Age: 68 Year
  Sex: Female

DRUGS (1)
  1. LANSOPRAZOLE [Suspect]

REACTIONS (3)
  - Subacute cutaneous lupus erythematosus [Recovered/Resolved]
  - Rash papulosquamous [Recovered/Resolved]
  - Scab [Recovered/Resolved]
